FAERS Safety Report 9229300 (Version 2)
Quarter: 2014Q3

REPORT INFORMATION
  Report Type: Spontaneous
  Country: US (occurrence: US)
  Receive Date: 20130412
  Receipt Date: 20140722
  Transmission Date: 20150326
  Serious: Yes (Other)
  Sender: FDA-Public Use
  Company Number: US-ASTELLAS-2012US010700

PATIENT
  Sex: Male
  Weight: 100 kg

DRUGS (4)
  1. LANTUS INSULIN [Concomitant]
     Indication: BLOOD GLUCOSE INCREASED
     Route: 065
  2. PROGRAF [Suspect]
     Active Substance: TACROLIMUS\TACROLIMUS ANHYDROUS
     Indication: RENAL TRANSPLANT
     Dosage: 2 MG IN MORNING AND 2 MG IN EVENING
     Route: 065
     Dates: start: 2005
  3. PROGRAF [Suspect]
     Active Substance: TACROLIMUS\TACROLIMUS ANHYDROUS
     Route: 065
     Dates: start: 1990, end: 201404
  4. HUMALOG [Concomitant]
     Active Substance: INSULIN LISPRO
     Indication: BLOOD GLUCOSE INCREASED
     Dosage: PER SCALE AC AND 2 HOURS PC
     Route: 065

REACTIONS (2)
  - Renal transplant [Unknown]
  - Insomnia [Recovered/Resolved]

NARRATIVE: CASE EVENT DATE: 2005
